FAERS Safety Report 8947281 (Version 2)
Quarter: 2012Q4

REPORT INFORMATION
  Report Type: Report from Study
  Country: ES (occurrence: ES)
  Receive Date: 20121205
  Receipt Date: 20121212
  Transmission Date: 20130627
  Serious: Yes (Death, Other)
  Sender: FDA-Public Use
  Company Number: ES-ROCHE-1163186

PATIENT
  Age: 72 Year
  Sex: Female

DRUGS (2)
  1. TRASTUZUMAB [Suspect]
     Indication: BREAST CANCER METASTATIC
     Dosage: loading dose
     Route: 065
  2. TRASTUZUMAB [Suspect]
     Dosage: maintenance dose
     Route: 065

REACTIONS (2)
  - Ejection fraction decreased [Unknown]
  - Disease progression [Fatal]
